FAERS Safety Report 14497931 (Version 1)
Quarter: 2018Q1

REPORT INFORMATION
  Report Type: Spontaneous
  Country: CA (occurrence: CA)
  Receive Date: 20180207
  Receipt Date: 20180207
  Transmission Date: 20180509
  Serious: Yes (Other)
  Sender: FDA-Public Use
  Company Number: CA-PFIZER INC-2018049274

PATIENT
  Age: 27 Year
  Sex: Female
  Weight: 61 kg

DRUGS (1)
  1. PRISTIQ EXTENDED-RELEASE [Suspect]
     Active Substance: DESVENLAFAXINE SUCCINATE
     Indication: DEPRESSION
     Dosage: 100 MG, ONCE DAILY FOR 98 DAYS
     Route: 048

REACTIONS (10)
  - Insomnia [Unknown]
  - Nervousness [Unknown]
  - Eating disorder [Unknown]
  - Fatigue [Unknown]
  - Panic attack [Unknown]
  - Paranoia [Unknown]
  - Sexual dysfunction [Unknown]
  - Anxiety [Unknown]
  - Sleep disorder [Unknown]
  - Tremor [Unknown]
